FAERS Safety Report 5194915-7 (Version None)
Quarter: 2006Q4

REPORT INFORMATION
  Report Type: 
  Country: None (occurrence: None)
  Receive Date: 20061229
  Receipt Date: 20060720
  Transmission Date: 20070319
  Serious: No
  Sender: FDA-Public Use
  Company Number: US-BRISTOL-MYERS SQUIBB COMPANY-13449640

PATIENT
  Sex: Female

DRUGS (1)
  1. SPRYCEL [Suspect]
     Dosage: SPRYCEL STOPPED IN AUGUST 2006 FOR 2-3 WEEKS, RESTARTED AFTER 05-SEP-2006 AND CONTINUES

REACTIONS (2)
  - NAUSEA [None]
  - RED BLOOD CELL COUNT DECREASED [None]
